FAERS Safety Report 18906938 (Version 1)
Quarter: 2021Q1

REPORT INFORMATION
  Report Type: Spontaneous
  Country: US (occurrence: US)
  Receive Date: 20210218
  Receipt Date: 20210218
  Transmission Date: 20210420
  Serious: No
  Sender: FDA-Public Use
  Company Number: US-CIPLA LTD.-2020US08858

PATIENT

DRUGS (1)
  1. DICLOFENAC [Suspect]
     Active Substance: DICLOFENAC
     Indication: TENDONITIS
     Dosage: UNK
     Route: 061
     Dates: end: 202011

REACTIONS (3)
  - Product use in unapproved indication [Unknown]
  - Product packaging issue [Unknown]
  - Off label use [Unknown]
